FAERS Safety Report 4595114-X (Version None)
Quarter: 2005Q1

REPORT INFORMATION
  Report Type: 
  Country: None (occurrence: None)
  Receive Date: 20050223
  Receipt Date: 20050214
  Transmission Date: 20050727
  Serious: Yes (Life-Threatening, Hospitalization, Other)
  Sender: FDA-Public Use
  Company Number: 2005-01-0006

PATIENT
  Age: 87 Year
  Sex: Female

DRUGS (1)
  1. DIAZOXIDE [Suspect]
     Indication: INSULINOMA
     Dosage: 25MG QD ORAL
     Route: 048
     Dates: start: 20031121, end: 20031127

REACTIONS (11)
  - BLOOD PRESSURE DECREASED [None]
  - BONE MARROW DEPRESSION [None]
  - CHILLS [None]
  - CIRCULATORY COLLAPSE [None]
  - HYPOGLYCAEMIA [None]
  - HYPOGLYCAEMIC COMA [None]
  - INSULIN C-PEPTIDE INCREASED [None]
  - NEUTROPHIL COUNT DECREASED [None]
  - PANCYTOPENIA [None]
  - PLATELET COUNT DECREASED [None]
  - PYREXIA [None]
